FAERS Safety Report 15776768 (Version 1)
Quarter: 2018Q4

REPORT INFORMATION
  Report Type: Spontaneous
  Country: US (occurrence: US)
  Receive Date: 20181229
  Receipt Date: 20181229
  Transmission Date: 20190205
  Serious: No
  Sender: FDA-Public Use
  Company Number: None

PATIENT
  Age: 36 Year
  Sex: Male
  Weight: 90 kg

DRUGS (1)
  1. XOFLUZA [Suspect]
     Active Substance: BALOXAVIR MARBOXIL
     Indication: INFLUENZA
     Dosage: ?          QUANTITY:2 TABLET(S);OTHER FREQUENCY:ONE TIME DOSE;?
     Route: 048
     Dates: start: 20181225, end: 20181225

REACTIONS (4)
  - Heart rate increased [None]
  - Heart rate irregular [None]
  - Anorectal discomfort [None]
  - Headache [None]

NARRATIVE: CASE EVENT DATE: 20181226
